FAERS Safety Report 4373216-0 (Version None)
Quarter: 2004Q2

REPORT INFORMATION
  Report Type: 
  Country: None (occurrence: None)
  Receive Date: 20040603
  Receipt Date: 20040525
  Transmission Date: 20050107
  Serious: Yes (Hospitalization)
  Sender: FDA-Public Use
  Company Number: 2004-04-1164

PATIENT
  Age: 60 Year
  Sex: Male
  Weight: 120.6568 kg

DRUGS (1)
  1. INTRON A [Suspect]
     Indication: MALIGNANT MELANOMA
     Dosage: HIGH DOSE INTRAVENOUS
     Route: 042

REACTIONS (3)
  - COUGH [None]
  - HYPOXIA [None]
  - SPUTUM DISCOLOURED [None]
